FAERS Safety Report 5633004-1 (Version None)
Quarter: 2008Q1

REPORT INFORMATION
  Report Type: 
  Country: None (occurrence: None)
  Receive Date: 20080214
  Receipt Date: 20080130
  Transmission Date: 20080703
  Serious: Yes (Hospitalization)
  Sender: FDA-Public Use
  Company Number: E2020-02202-SPO-GB

PATIENT
  Age: 78 Year
  Sex: Male

DRUGS (2)
  1. ARICEPT [Suspect]
     Indication: DEMENTIA
     Dosage: 5 MG, 1 IN 1 D, ORAL
     Route: 048
  2. OLANZAPINE [Suspect]
     Indication: MENTAL DISORDER
     Dosage: 10 MG, ORAL; 10 YEARS AGO
     Route: 048

REACTIONS (5)
  - DRUG INTERACTION [None]
  - ENCEPHALOPATHY [None]
  - NEUROLEPTIC MALIGNANT SYNDROME [None]
  - PARKINSONISM [None]
  - PNEUMONIA ASPIRATION [None]
